FAERS Safety Report 7266637-X (Version None)
Quarter: 2011Q1

REPORT INFORMATION
  Report Type: 
  Country: None (occurrence: None)
  Receive Date: 20110131
  Receipt Date: 20110118
  Transmission Date: 20110831
  Serious: Yes (Other)
  Sender: FDA-Public Use
  Company Number: FR-MYLANLABS-2011S1001237

PATIENT
  Age: 71 Year
  Sex: Female

DRUGS (4)
  1. METHOTREXATE [Suspect]
     Dates: start: 20030101
  2. METHOTREXATE [Suspect]
     Indication: DERMATOMYOSITIS
     Dosage: INCREASED UP TO 20 MG/WEEK BY 2006.
     Route: 065
     Dates: start: 20030101
  3. IMMUNE GLOBULIN NOS [Concomitant]
     Indication: DERMATOMYOSITIS
     Route: 041
     Dates: start: 20060101, end: 20060601
  4. PREDNISOLONE [Concomitant]
     Indication: DERMATOMYOSITIS
     Dosage: MAINTENANCE DOSAGE OF 10-20 MG/DAY
     Route: 065
     Dates: start: 20010101

REACTIONS (3)
  - INJECTION SITE NECROSIS [None]
  - ABDOMINAL DISCOMFORT [None]
  - EPSTEIN-BARR VIRUS ASSOCIATED LYMPHOPROLIFERATIVE DISORDER [None]
